FAERS Safety Report 9697251 (Version 3)
Quarter: 2013Q4

REPORT INFORMATION
  Report Type: Report from Study
  Country: JP (occurrence: JP)
  Receive Date: 20131120
  Receipt Date: 20131204
  Transmission Date: 20140711
  Serious: Yes (Other)
  Sender: FDA-Public Use
  Company Number: JP-009507513-1305JPN006078

PATIENT
  Age: 34 Year
  Sex: Female
  Weight: 47 kg

DRUGS (7)
  1. GANIRELIX ACETATE [Suspect]
     Indication: PREVENTION OF PREMATURE OVULATION
     Dosage: 0.25 MG, QD
     Route: 058
     Dates: start: 20100520, end: 20100522
  2. PREGNYL 5000IU [Suspect]
     Indication: OVULATION INDUCTION
     Dosage: 10 000-MILLION IU A DAY
     Dates: start: 20100523, end: 20100523
  3. PROGESTON [Concomitant]
     Indication: IN VITRO FERTILISATION
     Dosage: 50 MG, QD
     Route: 030
     Dates: start: 20100727, end: 20100816
  4. GONAL-F [Concomitant]
     Indication: IN VITRO FERTILISATION
     Dosage: 150(UNDER 1000UNIT), QD
     Route: 058
     Dates: start: 20100512, end: 20100523
  5. MENOTROPINS [Concomitant]
     Indication: IN VITRO FERTILISATION
     Dosage: 75(UNDER 1000UNIT), QD
     Route: 030
     Dates: start: 20100512, end: 20100516
  6. MENOTROPINS [Concomitant]
     Dosage: 150(UNDER 1000UNIT), QD
     Route: 030
     Dates: start: 20100517, end: 20100519
  7. GONADOTROPIN, CHORIONIC [Concomitant]
     Indication: IN VITRO FERTILISATION
     Dosage: 100(UNDER 1000UNIT), QD
     Route: 030
     Dates: start: 20100520, end: 20100523

REACTIONS (2)
  - Abortion [Recovered/Resolved]
  - Maternal exposure during pregnancy [Recovered/Resolved]
